FAERS Safety Report 6622884-9 (Version None)
Quarter: 2010Q1

REPORT INFORMATION
  Report Type: 
  Country: None (occurrence: None)
  Receive Date: 20100310
  Receipt Date: 20091229
  Transmission Date: 20100710
  Serious: No
  Sender: FDA-Public Use
  Company Number: US-BIOGENIDEC-2009BI042342

PATIENT
  Age: 36 Year
  Sex: Female

DRUGS (5)
  1. AVONEX [Suspect]
     Indication: MULTIPLE SCLEROSIS
     Route: 030
     Dates: start: 20060903
  2. AVONEX [Suspect]
     Route: 030
     Dates: start: 20090701, end: 20090701
  3. AVONEX [Suspect]
     Route: 030
     Dates: start: 20090101, end: 20090101
  4. AVONEX [Suspect]
     Route: 030
     Dates: start: 20090101, end: 20090101
  5. AVONEX [Suspect]
     Route: 030
     Dates: start: 20090101

REACTIONS (6)
  - ARTHRALGIA [None]
  - DEPRESSION [None]
  - FALL [None]
  - PAIN IN EXTREMITY [None]
  - PARAESTHESIA [None]
  - URINARY INCONTINENCE [None]
